FAERS Safety Report 8519531-8 (Version None)
Quarter: 2012Q3

REPORT INFORMATION
  Report Type: 
  Country: None (occurrence: None)
  Receive Date: 20120718
  Receipt Date: 20120716
  Transmission Date: 20120928
  Serious: Yes (Hospitalization)
  Sender: FDA-Public Use
  Company Number: IT-BAYER-2012-060774

PATIENT
  Age: 68 Year
  Sex: Female

DRUGS (1)
  1. ULTRAVIST 150 [Suspect]
     Indication: COMPUTERISED TOMOGRAM
     Dosage: 140 ML, ONCE
     Route: 042
     Dates: start: 20120613, end: 20120613

REACTIONS (4)
  - BLISTER [None]
  - SKIN DISCOLOURATION [None]
  - ERYTHEMA [None]
  - RASH PAPULAR [None]
